FAERS Safety Report 15412372 (Version 1)
Quarter: 2018Q3

REPORT INFORMATION
  Report Type: Spontaneous
  Country: US (occurrence: US)
  Receive Date: 20180921
  Receipt Date: 20180921
  Transmission Date: 20181010
  Serious: No
  Sender: FDA-Public Use
  Company Number: US-SHIRE-US201836225

PATIENT
  Sex: Female

DRUGS (1)
  1. XIIDRA [Suspect]
     Active Substance: LIFITEGRAST
     Indication: OFF LABEL USE
     Dosage: UNK UNK, AS REQ^D
     Route: 047

REACTIONS (6)
  - Vision blurred [Unknown]
  - Instillation site discomfort [Unknown]
  - Drug ineffective [Unknown]
  - Instillation site irritation [Unknown]
  - Off label use [Unknown]
  - Instillation site reaction [Unknown]
